FAERS Safety Report 4560587-5 (Version None)
Quarter: 2005Q1

REPORT INFORMATION
  Report Type: 
  Country: None (occurrence: None)
  Receive Date: 20050125
  Receipt Date: 20050111
  Transmission Date: 20050727
  Serious: Yes (Disabling, Other)
  Sender: FDA-Public Use
  Company Number: US-AMGEN-US109194

PATIENT
  Sex: Female

DRUGS (9)
  1. ENBREL [Suspect]
     Indication: RHEUMATOID ARTHRITIS
     Route: 058
     Dates: start: 20021204, end: 20041212
  2. METHOTREXATE [Suspect]
     Route: 048
     Dates: start: 20011001
  3. CELEBREX [Concomitant]
     Route: 048
     Dates: start: 20000101
  4. ZOLOFT [Concomitant]
  5. SYNTHROID [Concomitant]
  6. INDERAL [Concomitant]
  7. ESTRADIOL [Concomitant]
  8. DITROPAN [Concomitant]
  9. CARBIDOPA AND LEVODOPA [Concomitant]

REACTIONS (2)
  - FACIAL PALSY [None]
  - HERPES ZOSTER [None]
